FAERS Safety Report 11872402 (Version 2)
Quarter: 2016Q1

REPORT INFORMATION
  Report Type: Spontaneous
  Country: JP (occurrence: JP)
  Receive Date: 20151228
  Receipt Date: 20160205
  Transmission Date: 20160526
  Serious: No
  Sender: FDA-Public Use
  Company Number: JP-PFIZER INC-2015470165

PATIENT
  Age: 42 Year
  Sex: Female

DRUGS (1)
  1. GABAPEN [Suspect]
     Active Substance: GABAPENTIN
     Route: 048

REACTIONS (1)
  - Amino acid level increased [Unknown]

NARRATIVE: CASE EVENT DATE: 201512
